FAERS Safety Report 22232034 (Version 1)
Quarter: 2023Q2

REPORT INFORMATION
  Report Type: Spontaneous
  Country: US (occurrence: None)
  Receive Date: 20230420
  Receipt Date: 20230420
  Transmission Date: 20230721
  Serious: No
  Sender: FDA-Public Use
  Company Number: US-ROCHE-3146783

PATIENT
  Sex: Female

DRUGS (2)
  1. ESBRIET [Suspect]
     Active Substance: PIRFENIDONE
     Indication: Idiopathic pulmonary fibrosis
     Dosage: FIRST WEEK: 1 TABLET ORALLY, 3 TIMES PER DAY; SECOND WEEK: 2 TABLETS ORALLY, 3 TIMES PER DAY; THIRD
     Route: 065
  2. OFEV [Concomitant]
     Active Substance: NINTEDANIB
     Route: 065

REACTIONS (1)
  - Diarrhoea [Recovered/Resolved]
